FAERS Safety Report 5708928-7 (Version None)
Quarter: 2008Q2

REPORT INFORMATION
  Report Type: 
  Country: None (occurrence: None)
  Receive Date: 20080416
  Receipt Date: 20080408
  Transmission Date: 20081010
  Serious: Yes (Other)
  Sender: FDA-Public Use
  Company Number: 2008008756

PATIENT
  Age: 16 Year
  Sex: Female
  Weight: 55.3388 kg

DRUGS (2)
  1. SUDAFED PE SEVERE, COLD CAPLET [Suspect]
     Indication: PHARYNGOLARYNGEAL PAIN
     Dosage: 2 CAPLETS EVERY 4 HOURS (2 IN 4 HR), ORAL
     Route: 048
     Dates: start: 20080325, end: 20080406
  2. LOESTRIN 1.5/30 [Concomitant]

REACTIONS (1)
  - URTICARIA [None]
